FAERS Safety Report 11825110 (Version 1)
Quarter: 2015Q4

REPORT INFORMATION
  Report Type: Spontaneous
  Country: FR (occurrence: FR)
  Receive Date: 20151211
  Receipt Date: 20151211
  Transmission Date: 20160305
  Serious: Yes (Other)
  Sender: FDA-Public Use
  Company Number: FR-ROCHE-1675744

PATIENT
  Age: 53 Year
  Sex: Male

DRUGS (2)
  1. MABTHERA [Suspect]
     Active Substance: RITUXIMAB
     Indication: PEMPHIGUS
     Route: 041
     Dates: start: 20150605, end: 20150605
  2. MABTHERA [Suspect]
     Active Substance: RITUXIMAB
     Route: 041
     Dates: start: 20150618, end: 20150618

REACTIONS (3)
  - Ocular hypertension [Unknown]
  - Visual acuity reduced [Unknown]
  - Myopia [Unknown]

NARRATIVE: CASE EVENT DATE: 20150616
